FAERS Safety Report 7132014-5 (Version None)
Quarter: 2010Q4

REPORT INFORMATION
  Report Type: 
  Country: None (occurrence: None)
  Receive Date: 20101124
  Receipt Date: 20101124
  Transmission Date: 20110411
  Serious: Yes (Life-Threatening)
  Sender: FDA-Public Use
  Company Number: None

PATIENT
  Age: 52 Year
  Sex: Male
  Weight: 100.6985 kg

DRUGS (6)
  1. CHANTIX [Suspect]
     Indication: SMOKING CESSATION THERAPY
     Dosage: 1 MG BID
     Dates: end: 20090603
  2. ALPRAZOLAM [Suspect]
     Indication: ANXIETY
  3. ACYCLOVIR [Concomitant]
  4. ATENOLOL [Concomitant]
  5. PAXIL [Concomitant]
  6. XANAX [Concomitant]

REACTIONS (4)
  - FALL [None]
  - GRAND MAL CONVULSION [None]
  - HEAD INJURY [None]
  - TONGUE BITING [None]
